FAERS Safety Report 5820875-9 (Version None)
Quarter: 2008Q3

REPORT INFORMATION
  Report Type: 
  Country: None (occurrence: None)
  Receive Date: 20080718
  Receipt Date: 20080718
  Transmission Date: 20090109
  Serious: Yes (Life-Threatening, Hospitalization, Disabling)
  Sender: FDA-Public Use
  Company Number: None

PATIENT
  Age: 67 Year
  Sex: Female
  Weight: 97.5234 kg

DRUGS (1)
  1. TORADOL [Suspect]
     Indication: EYE PAIN
     Dosage: 80 MG ONE TIME IV
     Route: 042
     Dates: start: 20080612, end: 20080612

REACTIONS (3)
  - DEVICE MALFUNCTION [None]
  - NONSPECIFIC REACTION [None]
  - RESPIRATORY DISTRESS [None]
